FAERS Safety Report 8391606-6 (Version None)
Quarter: 2012Q1

REPORT INFORMATION
  Report Type: 
  Country: None (occurrence: None)
  Receive Date: 20120323
  Receipt Date: 20110817
  Transmission Date: 20120608
  Serious: Yes (Other)
  Sender: FDA-Public Use
  Company Number: 163-21880-11033420

PATIENT
  Age: 77 Year
  Sex: Female

DRUGS (8)
  1. VITAMIN D [Concomitant]
  2. AMLODIPINE BESYLATE [Concomitant]
  3. REVLIMID [Suspect]
     Indication: MULTIPLE MYELOMA
     Dosage: 10 MG, DAILY FOR 21 DAYS THEN 7 DAYS OFF, PO ; 5 MG, DAILY, PO
     Route: 048
     Dates: start: 20110312, end: 20110317
  4. REVLIMID [Suspect]
     Indication: MULTIPLE MYELOMA
     Dosage: 10 MG, DAILY FOR 21 DAYS THEN 7 DAYS OFF, PO ; 5 MG, DAILY, PO
     Route: 048
     Dates: start: 20110331
  5. ASPIRIN [Concomitant]
  6. COZAAR [Concomitant]
  7. DEXMETHASONE (DEXAMETHASONE) [Concomitant]
  8. ARICEPT [Concomitant]

REACTIONS (2)
  - SYNCOPE [None]
  - HYPERHIDROSIS [None]
